FAERS Safety Report 13962652 (Version 2)
Quarter: 2017Q4

REPORT INFORMATION
  Report Type: Spontaneous
  Country: US (occurrence: US)
  Receive Date: 20170913
  Receipt Date: 20171013
  Transmission Date: 20180320
  Serious: Yes (Death)
  Sender: FDA-Public Use
  Company Number: US-TAIHO ONCOLOGY INC-EU-2017-01200

PATIENT
  Age: 52 Year
  Sex: Male

DRUGS (14)
  1. LORAZEPAM. [Concomitant]
     Active Substance: LORAZEPAM
     Dosage: NI
  2. INSULIN [Concomitant]
     Active Substance: INSULIN NOS
     Dosage: NI
  3. COMPAZINE [Concomitant]
     Active Substance: PROCHLORPERAZINE MALEATE
     Dosage: NI
  4. LONSURF [Suspect]
     Active Substance: TIPIRACIL HYDROCHLORIDE\TRIFLURIDINE
     Indication: RECTOSIGMOID CANCER
     Route: 048
     Dates: start: 20170801
  5. APIXABAN [Concomitant]
     Active Substance: APIXABAN
     Dosage: NI
  6. DOCUSATE [Concomitant]
     Active Substance: DOCUSATE
     Dosage: NI
  7. OXYCONTIN [Concomitant]
     Active Substance: OXYCODONE HYDROCHLORIDE
     Dosage: NI
  8. GABAPENTIN. [Concomitant]
     Active Substance: GABAPENTIN
     Dosage: NI
  9. XALATAN [Concomitant]
     Active Substance: LATANOPROST
     Dosage: NI
  10. DEXAMETHASONE. [Concomitant]
     Active Substance: DEXAMETHASONE
     Dosage: NI
  11. FENTANYL. [Concomitant]
     Active Substance: FENTANYL
     Dosage: NI
  12. XALATAN [Concomitant]
     Active Substance: LATANOPROST
     Dosage: NI
  13. LIDODERM [Concomitant]
     Active Substance: LIDOCAINE
     Dosage: NI
  14. ZOFRAN [Concomitant]
     Active Substance: ONDANSETRON HYDROCHLORIDE
     Dosage: NI

REACTIONS (2)
  - Cardiopulmonary failure [Fatal]
  - Disease progression [Fatal]

NARRATIVE: CASE EVENT DATE: 20170828
